FAERS Safety Report 8972283 (Version 4)
Quarter: 2013Q2

REPORT INFORMATION
  Report Type: Spontaneous
  Country: US (occurrence: US)
  Receive Date: 20121219
  Receipt Date: 20130401
  Transmission Date: 20140414
  Serious: Yes (Hospitalization)
  Sender: FDA-Public Use
  Company Number: US-JNJFOC-20121205163

PATIENT
  Age: 62 Year
  Sex: Male
  Weight: 145.15 kg

DRUGS (8)
  1. XARELTO [Suspect]
     Indication: CEREBROVASCULAR ACCIDENT PROPHYLAXIS
     Route: 048
     Dates: start: 20121002, end: 20121127
  2. XARELTO [Suspect]
     Indication: ATRIAL FIBRILLATION
     Route: 048
     Dates: start: 20121002, end: 20121127
  3. HEPARIN [Concomitant]
     Indication: ANTICOAGULANT THERAPY
     Route: 065
     Dates: start: 20121001
  4. ASPIRIN [Concomitant]
  5. FORANE [Concomitant]
     Indication: ANAESTHESIA
     Route: 065
     Dates: start: 20121001
  6. NEXIUM [Concomitant]
     Indication: PRODUCT USED FOR UNKNOWN INDICATION
     Route: 065
  7. LOPRESSOR [Concomitant]
     Indication: PRODUCT USED FOR UNKNOWN INDICATION
     Route: 065
  8. UNKNOWN MULTIPLE MEDICATION [Concomitant]
     Indication: PRODUCT USED FOR UNKNOWN INDICATION
     Route: 065

REACTIONS (8)
  - Asthma [Recovered/Resolved]
  - Gastric polyps [Unknown]
  - Anaemia [Unknown]
  - Haematocrit decreased [Unknown]
  - Disability [Recovered/Resolved]
  - Haemorrhage [Unknown]
  - Decreased appetite [Recovering/Resolving]
  - Nausea [Recovering/Resolving]
